FAERS Safety Report 5667229-6 (Version None)
Quarter: 2008Q1

REPORT INFORMATION
  Report Type: 
  Country: None (occurrence: None)
  Receive Date: 20080315
  Receipt Date: 20080116
  Transmission Date: 20080703
  Serious: No
  Sender: FDA-Public Use
  Company Number: US-ABBOTT-08P-163-0433942-00

PATIENT
  Sex: Female
  Weight: 78.996 kg

DRUGS (4)
  1. HUMIRA [Suspect]
     Indication: PSORIATIC ARTHROPATHY
     Route: 058
  2. HUMIRA [Suspect]
     Indication: PSORIATIC ARTHROPATHY
     Route: 058
     Dates: start: 20070416
  3. HUMIRA [Suspect]
     Route: 058
     Dates: end: 20070901
  4. HUMIRA [Suspect]
     Route: 058
     Dates: start: 20070901

REACTIONS (3)
  - DRUG INEFFECTIVE [None]
  - HAEMATOMA [None]
  - PSORIATIC ARTHROPATHY [None]
